FAERS Safety Report 24669289 (Version 1)
Quarter: 2024Q4

REPORT INFORMATION
  Report Type: Spontaneous
  Country: DE (occurrence: DE)
  Receive Date: 20241127
  Receipt Date: 20241127
  Transmission Date: 20250115
  Serious: Yes (Other)
  Sender: SANDOZ
  Company Number: DE-NOVPHSZ-PHHY2018DE066918

PATIENT
  Age: 50 Year
  Sex: Female

DRUGS (2)
  1. CLINDAMYCIN [Interacting]
     Active Substance: CLINDAMYCIN
     Indication: Tooth infection
     Dosage: UNK
     Route: 065
  2. DIETARY SUPPLEMENT\HERBALS\MILK THISTLE [Interacting]
     Active Substance: MILK THISTLE
     Indication: Metabolic dysfunction-associated liver disease
     Dosage: UNK
     Route: 065

REACTIONS (4)
  - Liver injury [Recovering/Resolving]
  - Drug interaction [Recovering/Resolving]
  - Jaundice [Recovering/Resolving]
  - Hepatic enzyme increased [Unknown]
